FAERS Safety Report 4602242-9 (Version None)
Quarter: 2005Q1

REPORT INFORMATION
  Report Type: 
  Country: None (occurrence: None)
  Receive Date: 20050201
  Receipt Date: 20040405
  Transmission Date: 20050727
  Serious: Yes (Life-Threatening, Other)
  Sender: FDA-Public Use
  Company Number: 200417531BWH

PATIENT
  Age: 29 Year
  Sex: Female
  Weight: 60 kg

DRUGS (8)
  1. AVELOX [Suspect]
     Indication: UPPER RESPIRATORY TRACT INFECTION
     Dosage: 400 MG, QD, ORAL
     Route: 048
     Dates: start: 20040102, end: 20040101
  2. AVELOX [Suspect]
     Indication: UPPER RESPIRATORY TRACT INFECTION
     Dosage: 400 MG, QD, ORAL
     Route: 048
     Dates: start: 20040218, end: 20040223
  3. ALEVE /00256202/ [Concomitant]
  4. ACETAMINOPHEN W/PSEUDOEPHEDRINE [Concomitant]
  5. QVAR 40 [Concomitant]
  6. ALLEGRA-D /OLD FORM/ [Concomitant]
  7. SINGULAIR [Concomitant]
  8. ALBUTEROL [Concomitant]

REACTIONS (7)
  - ABDOMINAL PAIN [None]
  - ANAPHYLACTIC REACTION [None]
  - DYSPNOEA [None]
  - ERYTHEMA [None]
  - GASTROINTESTINAL PAIN [None]
  - SWELLING FACE [None]
  - URTICARIA [None]
